FAERS Safety Report 8886092 (Version 2)
Quarter: 2012Q4

REPORT INFORMATION
  Report Type: Report from Study
  Country: CA (occurrence: CA)
  Receive Date: 20121105
  Receipt Date: 20121119
  Transmission Date: 20130627
  Serious: Yes (Hospitalization)
  Sender: FDA-Public Use
  Company Number: CA-ROCHE-1108805

PATIENT
  Sex: Female
  Weight: 124.85 kg

DRUGS (9)
  1. TOCILIZUMAB [Suspect]
     Indication: RHEUMATOID ARTHRITIS
     Route: 042
     Dates: start: 20120621
  2. FOLIC ACID [Concomitant]
  3. NAPROXEN [Concomitant]
  4. RABEPRAZOLE [Concomitant]
  5. LYRICA [Concomitant]
  6. TRIDURAL [Concomitant]
  7. PLAQUENIL [Concomitant]
  8. METHOTREXATE [Concomitant]
  9. VITAMIN B12 [Concomitant]

REACTIONS (2)
  - Aphthous stomatitis [Not Recovered/Not Resolved]
  - Pneumonia [Not Recovered/Not Resolved]
